FAERS Safety Report 6974762-3 (Version None)
Quarter: 2010Q3

REPORT INFORMATION
  Report Type: 
  Country: None (occurrence: None)
  Receive Date: 20100909
  Receipt Date: 20081212
  Transmission Date: 20110219
  Serious: No
  Sender: FDA-Public Use
  Company Number: US-WYE-H07233008

PATIENT
  Sex: Female

DRUGS (4)
  1. PROTONIX [Suspect]
     Route: 048
     Dates: start: 20071201
  2. METOPROLOL TARTRATE [Concomitant]
  3. TEMPRA [Concomitant]
  4. DIGOXIN [Concomitant]

REACTIONS (1)
  - VITAMIN B12 DECREASED [None]
